FAERS Safety Report 17512034 (Version 1)
Quarter: 2020Q1

REPORT INFORMATION
  Report Type: Spontaneous
  Country: US (occurrence: US)
  Receive Date: 20200307
  Receipt Date: 20200307
  Transmission Date: 20200409
  Serious: Yes (Hospitalization)
  Sender: FDA-Public Use
  Company Number: US-ZYDUS-048566

PATIENT
  Age: 18 Year
  Sex: Female

DRUGS (1)
  1. BOSENTAN. [Suspect]
     Active Substance: BOSENTAN
     Indication: PULMONARY ARTERIAL HYPERTENSION
     Route: 048
     Dates: start: 20190621

REACTIONS (3)
  - Diarrhoea [Unknown]
  - Vomiting [Unknown]
  - Thyroid disorder [Unknown]

NARRATIVE: CASE EVENT DATE: 2020
